FAERS Safety Report 11090606 (Version 3)
Quarter: 2015Q3

REPORT INFORMATION
  Report Type: Spontaneous
  Country: DK (occurrence: DK)
  Receive Date: 20150505
  Receipt Date: 20150807
  Transmission Date: 20151125
  Serious: Yes (Disabling, Other)
  Sender: FDA-Public Use
  Company Number: PHHY2015DK052011

PATIENT
  Age: 50 Year
  Sex: Male
  Weight: 75 kg

DRUGS (1)
  1. TASIGNA [Suspect]
     Active Substance: NILOTINIB
     Indication: CHRONIC MYELOID LEUKAEMIA
     Dosage: 400 MG, BID
     Route: 048
     Dates: start: 20130325, end: 20130415

REACTIONS (8)
  - Influenza like illness [Recovered/Resolved with Sequelae]
  - Thrombocytopenia [Unknown]
  - Depression [Recovered/Resolved]
  - Myalgia [Recovered/Resolved]
  - Night sweats [Recovered/Resolved]
  - Arthralgia [Recovered/Resolved]
  - Suicidal ideation [Recovered/Resolved]
  - Anaemia [Unknown]

NARRATIVE: CASE EVENT DATE: 20130325
